FAERS Safety Report 7793058-3 (Version None)
Quarter: 2011Q4

REPORT INFORMATION
  Report Type: 
  Country: None (occurrence: None)
  Receive Date: 20111003
  Receipt Date: 20110922
  Transmission Date: 20120403
  Serious: Yes (Hospitalization)
  Sender: FDA-Public Use
  Company Number: CA-JNJFOC-20110906958

PATIENT
  Sex: Female
  Weight: 73 kg

DRUGS (4)
  1. REMICADE [Suspect]
     Indication: RHEUMATOID ARTHRITIS
     Dosage: THERAPY DURATION REPORTED AS FROM: ^1105^ TO:^1405^
     Route: 042
  2. ELECTROLYTE SOLUTION [Concomitant]
     Route: 065
  3. REMICADE [Suspect]
     Route: 042
     Dates: start: 20100801
  4. LEVOFLOXACIN [Concomitant]
     Dosage: FOR 6 DAYS
     Route: 065

REACTIONS (4)
  - INFLUENZA LIKE ILLNESS [None]
  - PNEUMONIA [None]
  - ELECTROLYTE IMBALANCE [None]
  - OROPHARYNGEAL PAIN [None]
